FAERS Safety Report 8611667-6 (Version None)
Quarter: 2012Q3

REPORT INFORMATION
  Report Type: 
  Country: None (occurrence: None)
  Receive Date: 20120822
  Receipt Date: 20120816
  Transmission Date: 20120928
  Serious: Yes (Other)
  Sender: FDA-Public Use
  Company Number: US-PFIZER INC-2012201640

PATIENT
  Age: 47 Year
  Sex: Female
  Weight: 81.6 kg

DRUGS (1)
  1. DEPO-PROVERA [Suspect]
     Indication: CONTRACEPTION
     Dosage: UNK
     Dates: start: 20030101, end: 20100101

REACTIONS (3)
  - WEIGHT INCREASED [None]
  - AMENORRHOEA [None]
  - MENORRHAGIA [None]
